FAERS Safety Report 5939783-8 (Version None)
Quarter: 2008Q4

REPORT INFORMATION
  Report Type: 
  Country: None (occurrence: None)
  Receive Date: 20081030
  Receipt Date: 20081030
  Transmission Date: 20090506
  Serious: No
  Sender: FDA-Public Use
  Company Number: None

PATIENT
  Sex: Female

DRUGS (2)
  1. WELLBUTRIN SR [Suspect]
     Indication: DEPRESSION
     Dosage: 200 BID
     Dates: start: 20080814
  2. WELLBUTRIN XL [Suspect]

REACTIONS (8)
  - AGITATION [None]
  - ASTHENIA [None]
  - DISTURBANCE IN ATTENTION [None]
  - FATIGUE [None]
  - IMPAIRED WORK ABILITY [None]
  - INSOMNIA [None]
  - NAUSEA [None]
  - SLEEP PHASE RHYTHM DISTURBANCE [None]
